FAERS Safety Report 9604569 (Version 1)
Quarter: 2013Q4

REPORT INFORMATION
  Report Type: Spontaneous
  Country: TH (occurrence: TH)
  Receive Date: 20131008
  Receipt Date: 20131008
  Transmission Date: 20140711
  Serious: Yes (Hospitalization)
  Sender: FDA-Public Use
  Company Number: TH-NOVOPROD-388999

PATIENT
  Age: 44 Year
  Sex: Female
  Weight: 104 kg

DRUGS (1)
  1. VICTOZA [Suspect]
     Indication: DIABETES MELLITUS
     Dosage: 0.3 MG, QD
     Route: 058
     Dates: start: 20130821

REACTIONS (2)
  - Supraventricular tachycardia [Unknown]
  - Flatulence [Unknown]
